FAERS Safety Report 13430332 (Version 1)
Quarter: 2017Q2

REPORT INFORMATION
  Report Type: Report from Study
  Country: ES (occurrence: ES)
  Receive Date: 20170412
  Receipt Date: 20170412
  Transmission Date: 20170912
  Serious: No
  Sender: FDA-Public Use
  Company Number: ES-JNJFOC-20160706390

PATIENT
  Age: 68 Year
  Sex: Female

DRUGS (1)
  1. PLACEBO [Suspect]
     Route: 065

REACTIONS (1)
  - Transient ischaemic attack [Unknown]

NARRATIVE: CASE EVENT DATE: 20160425
